FAERS Safety Report 6601677-2 (Version None)
Quarter: 2010Q1

REPORT INFORMATION
  Report Type: 
  Country: None (occurrence: None)
  Receive Date: 20100225
  Receipt Date: 20100223
  Transmission Date: 20100710
  Serious: Yes (Life-Threatening, Hospitalization)
  Sender: FDA-Public Use
  Company Number: DE-ROCHE-685761

PATIENT
  Sex: Female
  Weight: 54 kg

DRUGS (9)
  1. INTERFERON ALFA-2A [Suspect]
     Indication: METASTATIC RENAL CELL CARCINOMA
     Dosage: DOSE FORM: PFS. DATE OF LAST DOSE PRIOR TO SAE: 10 FEBRUARY 2010
     Route: 065
     Dates: start: 20100201, end: 20100212
  2. INTERFERON ALFA-2A [Suspect]
     Route: 065
     Dates: start: 20100218
  3. BEVACIZUMAB [Suspect]
     Indication: METASTATIC RENAL CELL CARCINOMA
     Dosage: FORM: INFUSION. DATE OF LAST DOSE PRIOR TO EVENT: 15 FEBRUARY 2010, TEMPORARILY INTERRUPTED.
     Route: 042
     Dates: start: 20100201, end: 20100217
  4. PANTOZOL [Concomitant]
     Dates: start: 20100213
  5. SODIUM POLYSTYRENE SULFONATE [Concomitant]
     Dates: start: 20100213, end: 20100214
  6. MCP [Concomitant]
     Dates: start: 20100213, end: 20100213
  7. VOMEX A [Concomitant]
     Dosage: DRUG REPORTED AS VOMEX.
     Dates: start: 20100213, end: 20100213
  8. MARCUMAR [Concomitant]
     Dosage: UNIT: MG
     Dates: start: 20090825
  9. KONAKION [Concomitant]
     Dosage: TDD: 20 GTTS
     Dates: start: 20100214, end: 20100214

REACTIONS (3)
  - CYSTITIS [None]
  - HYPONATRAEMIA [None]
  - NAUSEA [None]
